FAERS Safety Report 9800816 (Version 2)
Quarter: 2014Q1

REPORT INFORMATION
  Report Type: Spontaneous
  Country: US (occurrence: US)
  Receive Date: 20140107
  Receipt Date: 20140107
  Transmission Date: 20141002
  Serious: Yes (Hospitalization)
  Sender: FDA-Public Use
  Company Number: US-BEH-2011028202

PATIENT
  Age: 55 Year
  Sex: Female
  Weight: 90 kg

DRUGS (44)
  1. HIZENTRA [Suspect]
     Dosage: 1 GM 5 ML; TOTAL HIZENTRA DOSE 13 G (65 ML) IN 1-2 HOURS USING 3-4 SITES ONCE EVERY WEEK
     Route: 058
  2. HIZENTRA [Suspect]
     Indication: HYPOGAMMAGLOBULINAEMIA
     Dosage: 4 GM 20 ML; TOTAL HIZENTRA DOSE 13 G (65 ML) IN 1-2 HOURS USING 3-4 SITES ONCE EVERY WEEK
     Route: 058
  3. HIZENTRA [Suspect]
     Dosage: 1 GM 5 ML; TOTAL HIZENTRA DOSE 13 G IN 1-2 HOURS USING 3-4 SITES ONCE EVERY WEEK
     Route: 058
  4. HIZENTRA [Suspect]
     Dosage: 4 GM 20 ML; TOTAL HIZENTRA DOSE 13 G IN 1-2 HOURS USING 3-4 SITES ONCE EVERY WEEK
     Route: 058
  5. HIZENTRA [Suspect]
     Dosage: 1 GM 5 ML; TOTAL HIZENTRA DOSE 13 G  IN 1-2 HOURS USING 3-4 SITES ONCE EVERY WEEK
     Route: 058
  6. HIZENTRA [Suspect]
     Dosage: 4 GM 20 ML; TOTAL HIZENTRA DOSE 13 G IN 1-2 HOURS USING 3-4 SITES ONCE EVERY WEEK
     Route: 058
  7. HIZENTRA [Suspect]
     Dosage: 1 GM 5 ML; TOTAL HIZENTRA DOSE 13 G ONCE EVERY WEEK
     Route: 058
  8. HIZENTRA [Suspect]
     Dosage: 4 GM 20 ML; TOTAL HIZENTRA DOSE 13 G ONCE EVERY WEEK
     Route: 058
  9. PREDNISONE [Concomitant]
  10. ENTOCORT [Concomitant]
  11. PATANASE [Concomitant]
  12. THEO-DUR [Concomitant]
  13. VERAMYST [Concomitant]
  14. HYDROCORTISONE [Concomitant]
  15. TYLENOL/CODEINE [Concomitant]
  16. VERAPAMIL [Concomitant]
  17. METOCLOPRAMIDE [Concomitant]
  18. TYLENOL [Concomitant]
  19. ALEVE [Concomitant]
  20. SINGULAIR [Concomitant]
  21. MAXALT [Concomitant]
  22. PRILOSEC [Concomitant]
  23. XANAX [Concomitant]
  24. PAXIL [Concomitant]
  25. ZOMIG [Concomitant]
  26. LASIX [Concomitant]
  27. TOPAMAX [Concomitant]
  28. ALBUTEROL [Concomitant]
  29. TRILEPTAL [Concomitant]
  30. LAMICTAL [Concomitant]
  31. ADVAIR [Concomitant]
  32. DIOVAN [Concomitant]
  33. DIPHENHYDRAMINE [Concomitant]
     Indication: PREMEDICATION
  34. EPI-PEN [Concomitant]
     Indication: PREMEDICATION
  35. LMX [Concomitant]
     Indication: PREMEDICATION
  36. POLYSPORIN [Concomitant]
  37. PERCOCET [Concomitant]
  38. LOVENOX [Concomitant]
  39. DOXYCYCLINE [Concomitant]
  40. HYDROCHLOROTHIAZIDE [Concomitant]
  41. KLOR-CON [Concomitant]
  42. AMLODIPINE [Concomitant]
  43. RANITIDINE [Concomitant]
  44. CIPRO [Concomitant]

REACTIONS (5)
  - Swollen tongue [Unknown]
  - Infusion site pruritus [Unknown]
  - Infusion related reaction [Recovered/Resolved]
  - Food allergy [Unknown]
  - Infusion site haemorrhage [Unknown]
